FAERS Safety Report 17696087 (Version 3)
Quarter: 2020Q4

REPORT INFORMATION
  Report Type: Spontaneous
  Country: US (occurrence: US)
  Receive Date: 20200423
  Receipt Date: 20201120
  Transmission Date: 20210113
  Serious: Yes (Hospitalization, Other)
  Sender: FDA-Public Use
  Company Number: US-PURDUE PHARMA-USA-2020-0151155

PATIENT
  Sex: Female

DRUGS (3)
  1. PERCOCET                           /00446701/ [Suspect]
     Active Substance: ACETAMINOPHEN\OXYCODONE HYDROCHLORIDE\OXYCODONE TEREPHTHALATE
     Indication: PRODUCT USED FOR UNKNOWN INDICATION
     Dosage: UNK
     Route: 065
  2. OXYCONTIN [Suspect]
     Active Substance: OXYCODONE HYDROCHLORIDE
     Indication: NEUROPATHY PERIPHERAL
     Dosage: 20 MG, UNK
     Route: 048
  3. OXYCONTIN [Suspect]
     Active Substance: OXYCODONE HYDROCHLORIDE
     Indication: COMPLEX REGIONAL PAIN SYNDROME

REACTIONS (10)
  - Pyrexia [Unknown]
  - Nerve injury [Unknown]
  - Major depression [Unknown]
  - Surgery [Unknown]
  - Spinal nerve stimulator implantation [Unknown]
  - Complex regional pain syndrome [Unknown]
  - Peripheral nerve operation [Unknown]
  - Drug dependence [Unknown]
  - Patient-device incompatibility [Unknown]
  - Mental disorder [Unknown]

NARRATIVE: CASE EVENT DATE: 2003
